FAERS Safety Report 5598832-X (Version None)
Quarter: 2007Q4

REPORT INFORMATION
  Report Type: 
  Country: None (occurrence: None)
  Receive Date: 20071226
  Receipt Date: 20071113
  Transmission Date: 20080405
  Serious: No
  Sender: FDA-Public Use
  Company Number: 2007PV033715

PATIENT
  Age: 58 Year
  Sex: Female

DRUGS (3)
  1. SYMLIN [Suspect]
     Indication: TYPE 2 DIABETES MELLITUS
     Dosage: 360 MCG;TID;SC
     Route: 058
     Dates: start: 20071001
  2. NOVOLOG [Concomitant]
  3. LANTUS [Concomitant]

REACTIONS (1)
  - INJECTION SITE BRUISING [None]
